FAERS Safety Report 9284471 (Version 1)
Quarter: 2013Q2

REPORT INFORMATION
  Report Type: Spontaneous
  Country: HR (occurrence: HR)
  Receive Date: 20130510
  Receipt Date: 20130510
  Transmission Date: 20140414
  Serious: Yes (Death)
  Sender: FDA-Public Use
  Company Number: HR-PFIZER INC-2013145489

PATIENT
  Sex: Female

DRUGS (4)
  1. LANSOPRAZOLE [Suspect]
     Dosage: UNK
     Route: 065
     Dates: start: 2009
  2. RAMIPRIL [Suspect]
     Dosage: UNK
     Route: 065
     Dates: start: 2009
  3. AMLODIPINE [Concomitant]
     Dosage: UNK
  4. HYDROCHLOROTHIAZIDE [Concomitant]
     Dosage: UNK

REACTIONS (3)
  - Stevens-Johnson syndrome [Fatal]
  - Sepsis [Fatal]
  - Multi-organ failure [Fatal]
